FAERS Safety Report 7659766-X (Version None)
Quarter: 2011Q3

REPORT INFORMATION
  Report Type: 
  Country: None (occurrence: None)
  Receive Date: 20110805
  Receipt Date: 20110218
  Transmission Date: 20111222
  Serious: No
  Sender: FDA-Public Use
  Company Number: US-ABBOTT-10P-163-0681887-00

PATIENT
  Sex: Female
  Weight: 59.474 kg

DRUGS (2)
  1. DIVALPROEX SODIUM [Suspect]
     Indication: CONVULSION
     Dosage: GENERIC FROM MYLAN
     Route: 048
     Dates: start: 20100101
  2. DEPAKOTE ER [Suspect]
     Indication: CONVULSION
     Dosage: AT HS
     Route: 048
     Dates: start: 20000601

REACTIONS (7)
  - PRURITUS [None]
  - HYPOTHYROIDISM [None]
  - PETECHIAE [None]
  - ABNORMAL DREAMS [None]
  - SOMNOLENCE [None]
  - DRY SKIN [None]
  - BLOOD THYROID STIMULATING HORMONE INCREASED [None]
